FAERS Safety Report 9095691 (Version 1)
Quarter: 2013Q1

REPORT INFORMATION
  Report Type: Spontaneous
  Country: FR (occurrence: None)
  Receive Date: 20130124
  Receipt Date: 20130124
  Transmission Date: 20140127
  Serious: Yes (Other)
  Sender: FDA-Public Use
  Company Number: DSA_61973_2013

PATIENT
  Age: 71 Year
  Sex: Female

DRUGS (8)
  1. MONOTILDIEM [Suspect]
     Route: 048
  2. KIVEXA [Suspect]
     Dosage: (DF)
     Route: 048
  3. ALDACTONE /00006201/ [Suspect]
     Route: 048
  4. LUCENTIS [Suspect]
     Dosage: (DF)
     Route: 047
  5. SUSTIVA [Suspect]
     Route: 048
  6. CARTEOL [Suspect]
     Dosage: (DF)
     Route: 047
  7. TRAVATAN [Suspect]
     Dosage: (DF)
     Route: 047
  8. CRESTOR [Suspect]
     Dosage: (DF)
     Route: 048

REACTIONS (4)
  - Hypertrophic cardiomyopathy [None]
  - Aortic arteriosclerosis [None]
  - Aortic valve incompetence [None]
  - Arteriosclerosis coronary artery [None]
